FAERS Safety Report 17244107 (Version 1)
Quarter: 2020Q1

REPORT INFORMATION
  Report Type: Spontaneous
  Country: US (occurrence: US)
  Receive Date: 20200107
  Receipt Date: 20200107
  Transmission Date: 20200409
  Serious: No
  Sender: FDA-Public Use
  Company Number: US-AMNEAL PHARMACEUTICALS-2019AMN00715

PATIENT
  Age: 6 Year
  Sex: Male

DRUGS (1)
  1. GUANFACINE. [Suspect]
     Active Substance: GUANFACINE
     Indication: AUTISM SPECTRUM DISORDER
     Dosage: UNK (TAKE HALF IN THE MORNING AND HALF IN THE EVENING)
     Route: 048
     Dates: start: 20190226, end: 20190301

REACTIONS (5)
  - Drug ineffective for unapproved indication [Unknown]
  - Product use issue [Unknown]
  - Anxiety [Recovered/Resolved]
  - Disturbance in attention [Recovered/Resolved]
  - Disruptive mood dysregulation disorder [Recovered/Resolved]

NARRATIVE: CASE EVENT DATE: 201902
